FAERS Safety Report 5659160-7 (Version None)
Quarter: 2008Q1

REPORT INFORMATION
  Report Type: 
  Country: None (occurrence: None)
  Receive Date: 20080311
  Receipt Date: 20070525
  Transmission Date: 20080703
  Serious: No
  Sender: FDA-Public Use
  Company Number: US-BAYER-200711712BCC

PATIENT
  Age: 63 Year
  Sex: Male
  Weight: 91 kg

DRUGS (8)
  1. ALEVE [Suspect]
     Indication: ARTHRALGIA
     Dosage: UNIT DOSE: 220 MG
     Route: 048
     Dates: start: 20070525
  2. IBUPROFEN [Concomitant]
  3. SYNTHROID [Concomitant]
  4. PLAVIX [Concomitant]
  5. AVODART [Concomitant]
  6. LYRICA [Concomitant]
  7. ARTANE [Concomitant]
  8. GEODON [Concomitant]

REACTIONS (1)
  - ARTHRALGIA [None]
